FAERS Safety Report 18231567 (Version 5)
Quarter: 2020Q3

REPORT INFORMATION
  Report Type: Spontaneous
  Country: ES (occurrence: ES)
  Receive Date: 20200904
  Receipt Date: 20200909
  Transmission Date: 20201103
  Serious: Yes (Death)
  Sender: FDA-Public Use
  Company Number: ES-BIOVITRUM-2020ES4684

PATIENT
  Age: 84 Year
  Sex: Male

DRUGS (3)
  1. ANAKINRA [Suspect]
     Active Substance: ANAKINRA
     Indication: COVID-19
     Dosage: 100 MG/6 H FOR 3 DAYS
     Route: 058
  2. METHYLPREDNISOLONE. [Concomitant]
     Active Substance: METHYLPREDNISOLONE
     Dosage: INTRAVENOUS METHYLPREDNISOLONE DOSE BY MG/KG/DAY WITH TAPERING AT THE PHYSICIANS CRITERIA.
     Route: 042
  3. ANAKINRA [Suspect]
     Active Substance: ANAKINRA
     Dosage: 100 MG/24 H FOR 4 DAYS
     Route: 058

REACTIONS (2)
  - Off label use [Recovered/Resolved]
  - Death [Fatal]
